FAERS Safety Report 4349531-3 (Version None)
Quarter: 2004Q2

REPORT INFORMATION
  Report Type: 
  Country: None (occurrence: None)
  Receive Date: 20040428
  Receipt Date: 20040123
  Transmission Date: 20050107
  Serious: Yes (Life-Threatening)
  Sender: FDA-Public Use
  Company Number: JP-MERCK-0401USA01935

PATIENT
  Age: 87 Year
  Sex: Female
  Weight: 39 kg

DRUGS (12)
  1. [THERAPY UNSPECIFIED] [Concomitant]
     Indication: ASTHENIA
     Route: 065
     Dates: end: 20031231
  2. FOSAMAX [Suspect]
     Indication: OSTEOPOROSIS
     Route: 048
     Dates: start: 20030319, end: 20031231
  3. ALUMINUM HYDROXIDE AND MAGNESIUM HYDROXIDE [Concomitant]
     Indication: GASTRIC DISORDER
     Route: 065
     Dates: end: 20031231
  4. AMLODIPINE BESYLATE [Suspect]
     Indication: HYPERTENSION
     Route: 065
     Dates: end: 20031231
  5. AZULENE SULFONATE SODIUM AND LEVOGLUTAMIDE [Concomitant]
     Indication: GASTRIC DISORDER
     Route: 065
     Dates: end: 20031231
  6. ETHYL LOFLAZEPATE [Concomitant]
     Indication: ANXIETY
     Route: 065
     Dates: end: 20031231
  7. PEPCID [Concomitant]
     Indication: GASTRIC DISORDER
     Route: 048
     Dates: start: 20030319, end: 20031231
  8. GUANABENZ ACETATE [Concomitant]
     Indication: HYPERTENSION
     Route: 065
     Dates: end: 20031231
  9. INDOMETHACIN [Concomitant]
     Indication: BACK PAIN
     Route: 065
     Dates: start: 20030520
  10. INDOMETHACIN [Concomitant]
     Indication: ARTHRALGIA
     Route: 065
     Dates: start: 20030520
  11. KALLIKREIN [Concomitant]
     Indication: CARDIOVASCULAR DISORDER
     Route: 065
     Dates: start: 20030319, end: 20031231
  12. MEFENAMIC ACID [Suspect]
     Indication: PYREXIA
     Route: 065

REACTIONS (2)
  - RENAL FAILURE ACUTE [None]
  - SUPRAVENTRICULAR EXTRASYSTOLES [None]
